FAERS Safety Report 16591964 (Version 2)
Quarter: 2019Q3

REPORT INFORMATION
  Report Type: Spontaneous
  Country: US (occurrence: US)
  Receive Date: 20190718
  Receipt Date: 20190802
  Transmission Date: 20191004
  Serious: Yes (Other)
  Sender: FDA-Public Use
  Company Number: US-MALLINCKRODT-T201904758

PATIENT
  Sex: Female
  Weight: 11 kg

DRUGS (3)
  1. H.P. ACTHAR [Suspect]
     Active Substance: CORTICOTROPIN
     Indication: INFANTILE SPASMS
     Dosage: UNK
     Route: 065
  2. H.P. ACTHAR [Suspect]
     Active Substance: CORTICOTROPIN
     Dosage: DAY 1-14: 0.46 ML, TWICE DAILY THEN TAPER
     Route: 030
     Dates: start: 20190626, end: 20190721
  3. H.P. ACTHAR [Suspect]
     Active Substance: CORTICOTROPIN
     Dosage: 0.43 ML, TWICE DAILY
     Route: 030
     Dates: start: 20190413, end: 2019

REACTIONS (11)
  - Abdominal distension [Not Recovered/Not Resolved]
  - Product dose omission [Unknown]
  - Infantile spasms [Not Recovered/Not Resolved]
  - Oropharyngeal pain [Recovered/Resolved]
  - Swelling face [Not Recovered/Not Resolved]
  - Product administration error [Not Recovered/Not Resolved]
  - Therapeutic product effect incomplete [Unknown]
  - Disease recurrence [Not Recovered/Not Resolved]
  - Irritability [Not Recovered/Not Resolved]
  - Weight increased [Not Recovered/Not Resolved]
  - Eye swelling [Recovered/Resolved]

NARRATIVE: CASE EVENT DATE: 2019
